FAERS Safety Report 4786034-6 (Version None)
Quarter: 2005Q4

REPORT INFORMATION
  Report Type: 
  Country: None (occurrence: None)
  Receive Date: 20051003
  Receipt Date: 20050909
  Transmission Date: 20060501
  Serious: Yes (Hospitalization)
  Sender: FDA-Public Use
  Company Number: US-BRISTOL-MYERS SQUIBB COMPANY-13106844

PATIENT
  Age: 56 Year
  Sex: Male

DRUGS (10)
  1. CARBOPLATIN [Suspect]
     Indication: NON-SMALL CELL LUNG CANCER
     Dosage: INITIAL TX DATE: 07-JUL-05.
     Route: 042
     Dates: start: 20050818, end: 20050818
  2. TAXOTERE [Suspect]
     Indication: NON-SMALL CELL LUNG CANCER
     Dosage: INITIAL TX DATE: 07-JUL-05.
     Route: 042
     Dates: start: 20050818, end: 20050818
  3. LEVAQUIN [Concomitant]
     Dates: start: 20050825
  4. REGLAN [Concomitant]
     Dates: start: 20050707
  5. MAGIC MOUTHWASH [Concomitant]
     Dates: start: 20050714
  6. EMEND [Concomitant]
     Dates: start: 20050714
  7. ADVAIR DISKUS 100/50 [Concomitant]
     Dates: start: 20050714
  8. IMODIUM [Concomitant]
     Dates: start: 20050712
  9. DECADRON [Concomitant]
     Dates: start: 20050714
  10. COMPAZINE [Concomitant]
     Dates: start: 20050811

REACTIONS (1)
  - DEEP VEIN THROMBOSIS [None]
